FAERS Safety Report 9470428 (Version 2)
Quarter: 2013Q3

REPORT INFORMATION
  Report Type: Spontaneous
  Country: GB (occurrence: GB)
  Receive Date: 20130822
  Receipt Date: 20130822
  Transmission Date: 20140515
  Serious: Yes (Other)
  Sender: FDA-Public Use
  Company Number: GB-TEVA-410116ISR

PATIENT
  Age: 53 Year
  Sex: Female

DRUGS (2)
  1. COPAXONE [Suspect]
     Dosage: 20 MILLIGRAM DAILY;
     Route: 058
  2. PARACETAMOL [Concomitant]
     Indication: HEADACHE
     Dosage: 1 GRAM DAILY;
     Route: 048

REACTIONS (2)
  - Uveitis [Not Recovered/Not Resolved]
  - Blood calcium increased [Not Recovered/Not Resolved]
